FAERS Safety Report 4274720-6 (Version None)
Quarter: 2004Q1

REPORT INFORMATION
  Report Type: 
  Country: None (occurrence: None)
  Receive Date: 20040120
  Receipt Date: 20040109
  Transmission Date: 20041129
  Serious: Yes (Hospitalization)
  Sender: FDA-Public Use
  Company Number: ES-BRISTOL-MYERS SQUIBB COMPANY-12474276

PATIENT
  Age: 54 Year
  Sex: Male
  Weight: 93 kg

DRUGS (2)
  1. CISPLATIN [Suspect]
     Indication: BLADDER CANCER
     Dosage: INITIAL DOSE: 25-APR-2003
     Dates: start: 20030621, end: 20030621
  2. GEMCITABINE [Suspect]
     Indication: BLADDER CANCER
     Dosage: INITIAL DOSE: 24-APR-2003
     Dates: start: 20030626, end: 20030626

REACTIONS (2)
  - PLATELET COUNT DECREASED [None]
  - PYREXIA [None]
